FAERS Safety Report 13081996 (Version 2)
Quarter: 2017Q2

REPORT INFORMATION
  Report Type: Spontaneous
  Country: SK (occurrence: SK)
  Receive Date: 20170103
  Receipt Date: 20170503
  Transmission Date: 20170830
  Serious: Yes (Other)
  Sender: FDA-Public Use
  Company Number: SK-ARIAD PHARMACEUTICALS, INC-2016SK007482

PATIENT
  Age: 79 Year
  Sex: Male

DRUGS (1)
  1. ICLUSIG [Suspect]
     Active Substance: PONATINIB
     Indication: CHRONIC MYELOID LEUKAEMIA
     Dosage: 45 MG, QD
     Route: 048
     Dates: start: 201603

REACTIONS (5)
  - Accelerated hypertension [Unknown]
  - Mobility decreased [Unknown]
  - Asthenia [Unknown]
  - Impaired self-care [Unknown]
  - Memory impairment [Unknown]
